FAERS Safety Report 7401658-5 (Version None)
Quarter: 2011Q2

REPORT INFORMATION
  Report Type: 
  Country: None (occurrence: None)
  Receive Date: 20110408
  Receipt Date: 20091013
  Transmission Date: 20111010
  Serious: No
  Sender: FDA-Public Use
  Company Number: 2009BI033053

PATIENT
  Sex: Female

DRUGS (2)
  1. TYSABRI [Suspect]
     Route: 042
     Dates: start: 20070712
  2. TYSABRI [Suspect]
     Indication: MULTIPLE SCLEROSIS
     Route: 042
     Dates: start: 20070215, end: 20070619

REACTIONS (4)
  - SPEECH DISORDER [None]
  - CATARACT [None]
  - DYSPHAGIA [None]
  - MULTIPLE SCLEROSIS RELAPSE [None]
